FAERS Safety Report 8312757-8 (Version None)
Quarter: 2012Q2

REPORT INFORMATION
  Report Type: 
  Country: None (occurrence: None)
  Receive Date: 20120426
  Receipt Date: 20120418
  Transmission Date: 20120825
  Serious: Yes (Hospitalization, Other)
  Sender: FDA-Public Use
  Company Number: US-AMGEN-USASP2012024811

PATIENT
  Age: 29 Year
  Sex: Female

DRUGS (3)
  1. ENBREL [Suspect]
     Indication: PSORIATIC ARTHROPATHY
     Dosage: 50 MG, 2 TIMES/WK
     Route: 058
     Dates: start: 20090101, end: 20110501
  2. LOVENOX HP [Concomitant]
     Dosage: UNK
  3. ENBREL [Suspect]
     Indication: PSORIASIS

REACTIONS (7)
  - LABOUR INDUCTION [None]
  - PREMATURE DELIVERY [None]
  - LABOUR COMPLICATION [None]
  - COAGULOPATHY [None]
  - MALAISE [None]
  - SINUSITIS [None]
  - PREGNANCY [None]
